FAERS Safety Report 13048924 (Version 1)
Quarter: 2016Q4

REPORT INFORMATION
  Report Type: Spontaneous
  Country: IT (occurrence: IT)
  Receive Date: 20161221
  Receipt Date: 20161221
  Transmission Date: 20170207
  Serious: Yes (Other)
  Sender: FDA-Public Use
  Company Number: IT-TEVA-722207ACC

PATIENT
  Sex: Female

DRUGS (1)
  1. LETROZOLE. [Suspect]
     Active Substance: LETROZOLE
     Indication: BREAST NEOPLASM
     Route: 065
     Dates: start: 20091125, end: 20101009

REACTIONS (5)
  - Joint stiffness [Unknown]
  - Toxicity to various agents [Unknown]
  - Arthralgia [Unknown]
  - Dermatitis exfoliative [Unknown]
  - Carpal tunnel syndrome [Unknown]
